FAERS Safety Report 9962992 (Version 2)
Quarter: 2014Q1

REPORT INFORMATION
  Report Type: Spontaneous
  Country: DE (occurrence: DE)
  Receive Date: 20140305
  Receipt Date: 20140310
  Transmission Date: 20141002
  Serious: Yes (Death)
  Sender: FDA-Public Use
  Company Number: DE-GLAXOSMITHKLINE-B0974292A

PATIENT
  Age: 51 Year
  Sex: Male

DRUGS (5)
  1. DIPHENHYDRAMINE [Suspect]
     Indication: SUICIDE ATTEMPT
     Route: 065
  2. NICOTINE [Suspect]
     Indication: SUICIDE ATTEMPT
     Route: 065
  3. TETRAZEPAM [Suspect]
     Indication: SUICIDE ATTEMPT
     Route: 065
  4. COTININE [Concomitant]
  5. METHADONE [Concomitant]

REACTIONS (2)
  - Completed suicide [Fatal]
  - Toxicity to various agents [Fatal]
